FAERS Safety Report 7831925-2 (Version None)
Quarter: 2011Q4

REPORT INFORMATION
  Report Type: 
  Country: None (occurrence: None)
  Receive Date: 20111021
  Receipt Date: 20111014
  Transmission Date: 20120403
  Serious: Yes (Hospitalization, Disabling, Other)
  Sender: FDA-Public Use
  Company Number: US-MERCK-1106USA00665

PATIENT
  Age: 57 Year
  Sex: Female
  Weight: 89 kg

DRUGS (4)
  1. FOSAMAX [Suspect]
     Indication: OSTEOPOROSIS
     Route: 048
     Dates: start: 20020722, end: 20100501
  2. FOSAMAX [Suspect]
     Route: 048
     Dates: start: 20090827
  3. FOSAMAX [Suspect]
     Indication: OSTEOPENIA
     Route: 048
     Dates: start: 20020722, end: 20100501
  4. FOSAMAX [Suspect]
     Route: 048
     Dates: start: 20090827

REACTIONS (29)
  - POLLAKIURIA [None]
  - NAUSEA [None]
  - OSTEOPOROSIS [None]
  - LIVER DISORDER [None]
  - NASAL SEPTUM DEVIATION [None]
  - RADIUS FRACTURE [None]
  - ABDOMINAL PAIN UPPER [None]
  - OSTEOARTHRITIS [None]
  - EPICONDYLITIS [None]
  - EUSTACHIAN TUBE DYSFUNCTION [None]
  - DEAFNESS [None]
  - LIMB DISCOMFORT [None]
  - LACERATION [None]
  - LOW TURNOVER OSTEOPATHY [None]
  - MEMORY IMPAIRMENT [None]
  - RED BLOOD CELL COUNT DECREASED [None]
  - MIGRAINE [None]
  - STRESS FRACTURE [None]
  - ARTERIOSCLEROSIS [None]
  - METATARSALGIA [None]
  - ARTHROPATHY [None]
  - FEMUR FRACTURE [None]
  - TINEA INFECTION [None]
  - MENINGIOMA [None]
  - INSOMNIA [None]
  - BLOOD CHOLESTEROL INCREASED [None]
  - DYSURIA [None]
  - DEAFNESS NEUROSENSORY [None]
  - FALL [None]
